FAERS Safety Report 7186566-X (Version None)
Quarter: 2010Q4

REPORT INFORMATION
  Report Type: 
  Country: None (occurrence: None)
  Receive Date: 20101222
  Receipt Date: 20101215
  Transmission Date: 20110411
  Serious: Yes (Other)
  Sender: FDA-Public Use
  Company Number: JP-BAXTER-2010BH030533

PATIENT
  Age: 20 Year
  Sex: Male

DRUGS (4)
  1. CYCLOPHOSPHAMIDE [Suspect]
     Indication: SARCOMA
     Route: 065
  2. HOLOXAN BAXTER [Suspect]
     Indication: SARCOMA
     Route: 065
  3. VINCRISTINE SULFATE [Suspect]
     Indication: SARCOMA
     Route: 065
  4. ACTINOMYCIN D [Suspect]
     Indication: SARCOMA
     Route: 065

REACTIONS (2)
  - BONE MARROW FAILURE [None]
  - CHOLANGITIS [None]
